FAERS Safety Report 8418019-2 (Version None)
Quarter: 2012Q2

REPORT INFORMATION
  Report Type: 
  Country: None (occurrence: None)
  Receive Date: 20120531
  Receipt Date: 20120521
  Transmission Date: 20120825
  Serious: Yes (Death, Life-Threatening, Hospitalization, Other)
  Sender: FDA-Public Use
  Company Number: 113583 -2

PATIENT
  Age: 36 Year
  Sex: Female
  Weight: 82 kg

DRUGS (1)
  1. ETOPOSIDE [Suspect]
     Indication: NON-SMALL CELL LUNG CANCER STAGE III
     Dosage: 110MG IV
     Route: 042
     Dates: start: 20100510, end: 20100611

REACTIONS (8)
  - BRONCHOPLEURAL FISTULA [None]
  - RADIATION FIBROSIS - LUNG [None]
  - RADIATION OESOPHAGITIS [None]
  - METASTASES TO BONE [None]
  - COMPUTERISED TOMOGRAM ABNORMAL [None]
  - TUMOUR NECROSIS [None]
  - SEPSIS [None]
  - PNEUMONIA [None]
